FAERS Safety Report 4658429-2 (Version None)
Quarter: 2005Q2

REPORT INFORMATION
  Report Type: 
  Country: None (occurrence: None)
  Receive Date: 20050510
  Receipt Date: 20050510
  Transmission Date: 20051028
  Serious: Yes (Hospitalization)
  Sender: FDA-Public Use
  Company Number: None

PATIENT
  Sex: Female

DRUGS (6)
  1. LAMICTAL [Suspect]
     Dosage: 300 MG AT 8 AM AND 8 PM
  2. GEODON [Suspect]
  3. ARTANE [Concomitant]
  4. ATIVAN [Concomitant]
  5. CHLORPROMAZINE [Concomitant]
  6. ZOLOFT [Concomitant]

REACTIONS (2)
  - GENERALISED OEDEMA [None]
  - RASH [None]
